APPROVED DRUG PRODUCT: CLINDAMYCIN PHOSPHATE
Active Ingredient: CLINDAMYCIN PHOSPHATE
Strength: EQ 150MG BASE/ML
Dosage Form/Route: INJECTABLE;INJECTION
Application: A062908 | Product #001
Applicant: BRISTOL MYERS SQUIBB PHARMA CO
Approved: Feb 1, 1989 | RLD: No | RS: No | Type: DISCN